FAERS Safety Report 5410284-9 (Version None)
Quarter: 2007Q3

REPORT INFORMATION
  Report Type: 
  Country: None (occurrence: None)
  Receive Date: 20070808
  Receipt Date: 20070730
  Transmission Date: 20080115
  Serious: Yes (Hospitalization, Other)
  Sender: FDA-Public Use
  Company Number: 2007S1000301

PATIENT
  Age: 36 Year
  Sex: Female

DRUGS (2)
  1. CUBICIN [Suspect]
     Indication: ENDOCARDITIS
  2. VANCOMYCIN [Concomitant]

REACTIONS (6)
  - BLOOD CULTURE POSITIVE [None]
  - OSTEOMYELITIS [None]
  - PULMONARY EMBOLISM [None]
  - SEPTIC EMBOLUS [None]
  - STAPHYLOCOCCAL INFECTION [None]
  - SUBCUTANEOUS ABSCESS [None]
